FAERS Safety Report 5119243-7 (Version None)
Quarter: 2006Q4

REPORT INFORMATION
  Report Type: 
  Country: None (occurrence: None)
  Receive Date: 20061002
  Receipt Date: 20061002
  Transmission Date: 20070319
  Serious: No
  Sender: FDA-Public Use
  Company Number: None

PATIENT

DRUGS (2)
  1. BUMETANIDE [Suspect]
     Dosage: INJECTABLE
  2. NOREPINEPHRINE BITARTRATE [Suspect]
     Dosage: INJECTABLE

REACTIONS (2)
  - DRUG DISPENSING ERROR [None]
  - MEDICATION ERROR [None]
